FAERS Safety Report 8415728-6 (Version None)
Quarter: 2012Q2

REPORT INFORMATION
  Report Type: 
  Country: None (occurrence: None)
  Receive Date: 20120606
  Receipt Date: 20120531
  Transmission Date: 20120825
  Serious: Yes (Hospitalization)
  Sender: FDA-Public Use
  Company Number: IT-SANOFI-AVENTIS-2012SA032492

PATIENT
  Age: 57 Year
  Sex: Female

DRUGS (7)
  1. HUMALOG [Suspect]
     Indication: DIABETES MELLITUS
     Route: 058
     Dates: start: 20090429, end: 20120429
  2. OLMESARTAN MEDOXOMIL/HYDROCHLOROTHIAZIDE [Concomitant]
     Route: 048
     Dates: start: 20100429, end: 20120429
  3. ZOPRANOL [Concomitant]
     Route: 048
  4. LANTUS [Suspect]
     Indication: DIABETES MELLITUS
     Route: 058
     Dates: start: 20090429, end: 20120429
  5. NEBIVOLOL HCL [Concomitant]
  6. HUMALOG [Suspect]
     Route: 058
  7. LANTUS [Suspect]
     Route: 058

REACTIONS (2)
  - HYPOGLYCAEMIA [None]
  - HYPOKALAEMIA [None]
